FAERS Safety Report 16014192 (Version 1)
Quarter: 2019Q1

REPORT INFORMATION
  Report Type: Spontaneous
  Country: US (occurrence: US)
  Receive Date: 20190227
  Receipt Date: 20190227
  Transmission Date: 20190418
  Serious: Yes (Other)
  Sender: FDA-Public Use
  Company Number: US-BAYER-2019-036228

PATIENT
  Age: 43 Year

DRUGS (12)
  1. LINEZ [Concomitant]
  2. CEFOX [CEFOTAXIME SODIUM] [Concomitant]
     Active Substance: CEFOTAXIME SODIUM
  3. MOXIFLOXACIN IV [Suspect]
     Active Substance: MOXIFLOXACIN
  4. AZITHRO [Concomitant]
     Active Substance: AZITHROMYCIN
  5. CIPRO [Concomitant]
     Active Substance: CIPROFLOXACIN HYDROCHLORIDE
  6. IMIPEN [Concomitant]
  7. MINO [MEQUITAZINE] [Concomitant]
  8. CLOFAZIMINE [Concomitant]
     Active Substance: CLOFAZIMINE
     Indication: MYCOBACTERIUM ABSCESSUS INFECTION
     Dosage: 100 MG, QD
  9. AMIKACIN INJECTION MEIJI [Concomitant]
  10. TIGEBAX [Concomitant]
  11. CLARITHRO [Concomitant]
  12. DOXY [DOXYCYCLINE] [Concomitant]

REACTIONS (3)
  - Muscular weakness [None]
  - Oesophageal motility disorder [None]
  - Pulmonary mass [None]
